FAERS Safety Report 14572554 (Version 1)
Quarter: 2018Q1

REPORT INFORMATION
  Report Type: Spontaneous
  Country: CN (occurrence: CN)
  Receive Date: 20180226
  Receipt Date: 20180226
  Transmission Date: 20180509
  Serious: Yes (Other)
  Sender: FDA-Public Use
  Company Number: CN-PRINSTON PHARMACEUTICAL INC.-2018PRN00062

PATIENT
  Age: 83 Year
  Sex: Male

DRUGS (21)
  1. VINPOCETINE [Concomitant]
     Active Substance: VINPOCETINE
     Route: 065
  2. GLICLAZIDE [Concomitant]
     Active Substance: GLICLAZIDE
     Dosage: 30 MG, 1X/DAY
     Route: 048
  3. INSULIN [Concomitant]
     Active Substance: INSULIN NOS
     Dosage: 6 U, 1X/DAY
     Route: 065
  4. BIFIDOBACTERIUM [Concomitant]
     Active Substance: BIFIDOBACTERIUM LONGUM
     Dosage: 0.7 G, 3X/DAY
     Route: 048
  5. INSULIN [Concomitant]
     Active Substance: INSULIN NOS
     Dosage: 6 U, 1X/DAY
     Route: 041
  6. IRBESARTAN. [Concomitant]
     Active Substance: IRBESARTAN
     Route: 065
  7. ACARBOSE. [Concomitant]
     Active Substance: ACARBOSE
     Dosage: 50 MG, 3X/DAY
     Route: 048
  8. CEFOTIAM [Concomitant]
     Active Substance: CEFOTIAM
     Route: 065
  9. ESOMEPRAZOLE [Concomitant]
     Active Substance: ESOMEPRAZOLE
     Dosage: 20 MG, 1X/DAY
     Route: 048
  10. INSULIN [Concomitant]
     Active Substance: INSULIN NOS
     Dosage: 8 U, 1X/DAY
     Route: 065
  11. CEFOPERAZONE-TAZOBACTAM [Suspect]
     Active Substance: CEFOPERAZONE\TAZOBACTAM SODIUM
     Indication: PNEUMONIA
     Dosage: 2 G, Q8H
     Route: 041
  12. ETIMICIN SULPHATE [Concomitant]
     Indication: PNEUMONIA
     Dosage: 0.2 G, 1X/DAY
     Route: 041
  13. CLOPIDOGREL BISULPHATE [Concomitant]
     Active Substance: CLOPIDOGREL BISULFATE
     Dosage: 75 MG, 1X/DAY
     Route: 048
  14. DOXYCYCLINE HYCLATE. [Suspect]
     Active Substance: DOXYCYCLINE HYCLATE
     Indication: PNEUMONIA
     Dosage: 0.2 G, 1X/DAY
     Route: 041
  15. TIAPRID [Concomitant]
     Active Substance: TIAPRIDE HYDROCHLORIDE
  16. ALPROSTADIL. [Concomitant]
     Active Substance: ALPROSTADIL
     Route: 065
  17. AMLODIPINE BESYLATE. [Concomitant]
     Active Substance: AMLODIPINE BESYLATE
     Dosage: 5 MG, 1X/DAY
     Route: 048
  18. AMBROXOL HYDROCHLORIDE [Concomitant]
     Active Substance: AMBROXOL HYDROCHLORIDE
     Dosage: 60 MG, 3X/DAY
     Route: 042
  19. AMBROXOL HYDROCHLORIDE [Concomitant]
     Active Substance: AMBROXOL HYDROCHLORIDE
     Dosage: 30 MG, 3X/DAY
     Route: 048
  20. HALOPERIDOL. [Concomitant]
     Active Substance: HALOPERIDOL
     Route: 065
  21. GLICLAZIDE [Concomitant]
     Active Substance: GLICLAZIDE
     Dosage: 60 MG, 1X/DAY
     Route: 048

REACTIONS (2)
  - Drug interaction [Recovered/Resolved]
  - Coagulopathy [Recovered/Resolved]

NARRATIVE: CASE EVENT DATE: 2016
